FAERS Safety Report 16260379 (Version 1)
Quarter: 2019Q2

REPORT INFORMATION
  Report Type: Spontaneous
  Country: RS (occurrence: RS)
  Receive Date: 20190501
  Receipt Date: 20190501
  Transmission Date: 20190711
  Serious: Yes (Other)
  Sender: FDA-Public Use
  Company Number: PHHY2019RS095453

PATIENT
  Sex: Female

DRUGS (4)
  1. EUTHYROX [Concomitant]
     Active Substance: LEVOTHYROXINE SODIUM
     Indication: HYPOTHYROIDISM
     Dosage: UNK
     Route: 065
  2. AIRFLUSAL FORSPIRO [Suspect]
     Active Substance: FLUTICASONE PROPIONATE\SALMETEROL XINAFOATE
     Indication: ASTHMA
     Dosage: 2 DF, QD
     Route: 055
  3. BERODUAL [Suspect]
     Active Substance: FENOTEROL HYDROBROMIDE\IPRATROPIUM BROMIDE
     Indication: PRODUCT USED FOR UNKNOWN INDICATION
     Dosage: UNK UNK, PRN
     Route: 065
  4. NOLPAZA [Concomitant]
     Active Substance: PANTOPRAZOLE SODIUM
     Indication: PRODUCT USED FOR UNKNOWN INDICATION
     Dosage: 40 MG, QD
     Route: 065

REACTIONS (18)
  - Tonsillar hypertrophy [Unknown]
  - Pulse abnormal [Unknown]
  - Respiratory tract infection [Unknown]
  - Fatigue [Unknown]
  - Hyperaemia [Unknown]
  - Infection [Unknown]
  - Dyspnoea [Unknown]
  - Asthma [Unknown]
  - Hyperhidrosis [Unknown]
  - Obstructive airways disorder [Unknown]
  - Dysphonia [Unknown]
  - Wheezing [Unknown]
  - Pharyngeal erythema [Unknown]
  - Dermatitis allergic [Unknown]
  - Forced vital capacity abnormal [Recovering/Resolving]
  - Hypersensitivity [Unknown]
  - Nasopharyngitis [Unknown]
  - Oxygen saturation abnormal [Unknown]

NARRATIVE: CASE EVENT DATE: 201711
